FAERS Safety Report 7978917-0 (Version None)
Quarter: 2011Q4

REPORT INFORMATION
  Report Type: 
  Country: None (occurrence: None)
  Receive Date: 20111205
  Receipt Date: 20111129
  Transmission Date: 20120403
  Serious: Yes (Hospitalization, Other)
  Sender: FDA-Public Use
  Company Number: 2011SP001281

PATIENT
  Age: 43 Year
  Sex: Female
  Weight: 88.4514 kg

DRUGS (9)
  1. LEVOTHYROXINE SODIUM [Concomitant]
  2. MIRTAZAPINE [Concomitant]
  3. LYRICA [Concomitant]
  4. NUVARING [Suspect]
     Indication: CONTRACEPTION
     Dosage: ;VAG
     Dates: start: 20080724, end: 20080905
  5. NUVARING [Suspect]
     Indication: MENSTRUATION IRREGULAR
     Dosage: ;VAG
     Dates: start: 20080724, end: 20080905
  6. PROPRANOLOL [Concomitant]
  7. DIAZEPAM [Concomitant]
  8. SEROQUEL [Concomitant]
  9. ZYPREXA [Concomitant]

REACTIONS (19)
  - PNEUMONIA [None]
  - DEEP VEIN THROMBOSIS [None]
  - INTERNATIONAL NORMALISED RATIO INCREASED [None]
  - OEDEMA PERIPHERAL [None]
  - HEPATIC STEATOSIS [None]
  - PULMONARY EMBOLISM [None]
  - HYPERCOAGULATION [None]
  - SYNOVITIS [None]
  - BLOOD CHOLESTEROL INCREASED [None]
  - MENTAL DISORDER [None]
  - ANXIETY [None]
  - FIBRIN D DIMER INCREASED [None]
  - CHONDROMALACIA [None]
  - DEPRESSION [None]
  - MENISCUS LESION [None]
  - DIABETES MELLITUS [None]
  - IRRITABLE BOWEL SYNDROME [None]
  - RED BLOOD CELL SEDIMENTATION RATE INCREASED [None]
  - PSORIASIS [None]
